FAERS Safety Report 4365473-1 (Version None)
Quarter: 2004Q2

REPORT INFORMATION
  Report Type: 
  Country: None (occurrence: None)
  Receive Date: 20040526
  Receipt Date: 20040521
  Transmission Date: 20050107
  Serious: Yes (Death, Hospitalization)
  Sender: FDA-Public Use
  Company Number: US-BRISTOL-MYERS SQUIBB COMPANY-12593877

PATIENT
  Age: 82 Year
  Sex: Male
  Weight: 69 kg

DRUGS (4)
  1. CETUXIMAB [Suspect]
     Indication: NON-SMALL CELL LUNG CANCER
     Dosage: START DATE OF FIRST COURSE 12-APR-2004
     Dates: start: 20040503, end: 20040503
  2. CARBOPLATIN [Suspect]
     Indication: NON-SMALL CELL LUNG CANCER
     Dates: start: 20040503, end: 20040503
  3. PACLITAXEL [Suspect]
     Indication: NON-SMALL CELL LUNG CANCER
     Dates: start: 20040503, end: 20040503
  4. RADIATION THERAPY [Suspect]

REACTIONS (5)
  - ARRHYTHMIA [None]
  - DEATH [None]
  - DYSPNOEA [None]
  - NEUTROPENIA [None]
  - PULMONARY EMBOLISM [None]
